FAERS Safety Report 24380321 (Version 1)
Quarter: 2024Q3

REPORT INFORMATION
  Report Type: Spontaneous
  Country: FR (occurrence: FR)
  Receive Date: 20240930
  Receipt Date: 20240930
  Transmission Date: 20241017
  Serious: Yes (Other)
  Sender: SANOFI AVENTIS
  Company Number: None

PATIENT
  Age: 2 Month
  Sex: Male

DRUGS (3)
  1. LOVENOX [Suspect]
     Active Substance: ENOXAPARIN SODIUM
     Indication: Deep vein thrombosis
     Dosage: 7000 IU, BID
     Route: 064
     Dates: start: 20240527, end: 20240607
  2. PROPRANOLOL [Suspect]
     Active Substance: PROPRANOLOL HYDROCHLORIDE
     Indication: Loeys-Dietz syndrome
     Dosage: 80 MG, QD (40 MG X 2/J)
     Route: 064
     Dates: start: 20240507, end: 20240607
  3. BISOPROLOL FUMARATE [Suspect]
     Active Substance: BISOPROLOL FUMARATE
     Indication: Loeys-Dietz syndrome
     Dosage: 3.75 MG, QD
     Route: 064
     Dates: start: 20231011, end: 20240507

REACTIONS (2)
  - Foetal growth restriction [Recovering/Resolving]
  - Maternal exposure during pregnancy [Recovered/Resolved]

NARRATIVE: CASE EVENT DATE: 20231011
